FAERS Safety Report 17751318 (Version 1)
Quarter: 2020Q2

REPORT INFORMATION
  Report Type: Spontaneous
  Country: US (occurrence: US)
  Receive Date: 20200506
  Receipt Date: 20200506
  Transmission Date: 20200714
  Serious: Yes (Other)
  Sender: FDA-Public Use
  Company Number: US-ACS-001686

PATIENT
  Age: 64 Year
  Sex: Female

DRUGS (3)
  1. AZTREONAM LYSINE [Suspect]
     Active Substance: AZTREONAM LYSINE
     Indication: CYSTIC FIBROSIS
     Dosage: 28 DAYS ON, 28 DAYS OFF
     Route: 055
     Dates: start: 201805
  2. MEROPENEM. [Suspect]
     Active Substance: MEROPENEM
     Route: 055
  3. TRIKAFTA [Suspect]
     Active Substance: ELEXACAFTOR\IVACAFTOR\TEZACAFTOR
     Route: 065

REACTIONS (2)
  - Drug hypersensitivity [Recovered/Resolved with Sequelae]
  - Off label use [Unknown]
